FAERS Safety Report 4300791-4 (Version None)
Quarter: 2004Q1

REPORT INFORMATION
  Report Type: 
  Country: None (occurrence: None)
  Receive Date: 20040218
  Receipt Date: 20040204
  Transmission Date: 20041129
  Serious: Yes (Other)
  Sender: FDA-Public Use
  Company Number: 2003-UK-00679UK

PATIENT
  Age: 40 Year
  Sex: Female

DRUGS (5)
  1. NEVIRAPINE (00015/0215/A) (NEVIRAPINE) (NR) [Suspect]
     Indication: HIV INFECTION
     Dosage: 400 MG
     Route: 048
     Dates: start: 19990501
  2. LAMIVUDINE (LAMIVUDINE) (NR) [Suspect]
     Indication: HIV INFECTION
     Dosage: 300 MG
     Route: 048
     Dates: start: 19990501
  3. ATENOLOL (ATENOLOL) (NR) [Concomitant]
  4. LISINOPRIL [Concomitant]
  5. STAVUDINE [Suspect]
     Dosage: 60 MG
     Route: 048
     Dates: start: 19990501

REACTIONS (1)
  - DIABETES MELLITUS [None]
